FAERS Safety Report 9748246 (Version 1)
Quarter: 2013Q4

REPORT INFORMATION
  Report Type: Report from Study
  Country: DE (occurrence: DE)
  Receive Date: 20131212
  Receipt Date: 20131212
  Transmission Date: 20140711
  Serious: Yes (Other)
  Sender: FDA-Public Use
  Company Number: DE-BAYER-2013-151712

PATIENT
  Sex: Male

DRUGS (1)
  1. BETAFERON [Suspect]
     Dosage: UNK
     Dates: start: 200409

REACTIONS (6)
  - Hepatic steatosis [None]
  - Fatigue [None]
  - Splenomegaly [None]
  - Lymphadenopathy [None]
  - Hyperhidrosis [None]
  - Influenza like illness [None]
